FAERS Safety Report 25940091 (Version 2)
Quarter: 2025Q4

REPORT INFORMATION
  Report Type: Spontaneous
  Country: EU (occurrence: EU)
  Receive Date: 20251020
  Receipt Date: 20251106
  Transmission Date: 20260118
  Serious: Yes (Other)
  Sender: NOVARTIS
  Company Number: EU-002147023-NVSC2025BE159520

PATIENT
  Age: 70 Year
  Sex: Female

DRUGS (2)
  1. LUTATHERA [Suspect]
     Active Substance: LUTETIUM OXODOTREOTIDE LU-177
     Indication: Carcinoid tumour pulmonary
     Dosage: UNK (FOUR INFUSIONS GIVEN EIGHT WEEKS APART) (4 TIMES 6-8 WEEKS INTERVAL)
     Route: 042
     Dates: start: 2019, end: 20190702
  2. LUTATHERA [Suspect]
     Active Substance: LUTETIUM OXODOTREOTIDE LU-177
     Dosage: UNK, CYCLIC (SECOND COURSE, (3 CYCLES)
     Route: 065
     Dates: start: 2024

REACTIONS (8)
  - Carcinoid tumour pulmonary [Recovered/Resolved]
  - Malignant neoplasm progression [Recovered/Resolved]
  - Metastases to liver [Recovered/Resolved]
  - Myelosuppression [Recovered/Resolved]
  - Leukopenia [Recovered/Resolved]
  - Neutropenia [Recovered/Resolved]
  - Thrombocytopenia [Recovered/Resolved]
  - Anaemia [Recovered/Resolved]

NARRATIVE: CASE EVENT DATE: 20210301
